FAERS Safety Report 24378590 (Version 1)
Quarter: 2024Q3

REPORT INFORMATION
  Report Type: Report from Study
  Country: US (occurrence: None)
  Receive Date: 20240930
  Receipt Date: 20240930
  Transmission Date: 20241017
  Serious: Yes (Death, Other)
  Sender: ADIENNE PHARMA & BIOTECH
  Company Number: US-ADIENNEP-2024AD000766

PATIENT

DRUGS (2)
  1. THIOTEPA [Suspect]
     Active Substance: THIOTEPA
     Indication: Autologous haematopoietic stem cell transplant
  2. CARMUSTINE [Suspect]
     Active Substance: CARMUSTINE
     Indication: Autologous haematopoietic stem cell transplant

REACTIONS (1)
  - Acute respiratory distress syndrome [Fatal]
